FAERS Safety Report 24912683 (Version 2)
Quarter: 2025Q1

REPORT INFORMATION
  Report Type: Report from Study
  Country: KR (occurrence: KR)
  Receive Date: 20250131
  Receipt Date: 20250214
  Transmission Date: 20250409
  Serious: Yes (Hospitalization, Other)
  Sender: KOWA PHARM
  Company Number: KR-KOWA-25JP000150AA

PATIENT
  Age: 51 Year
  Sex: Female
  Weight: 74.4 kg

DRUGS (1)
  1. EZETIMIBE\PITAVASTATIN CALCIUM [Suspect]
     Active Substance: EZETIMIBE\PITAVASTATIN CALCIUM
     Indication: Hypercholesterolaemia
     Dosage: 2/10 MG, QD
     Route: 048
     Dates: start: 20231005

REACTIONS (1)
  - Colon cancer [Recovering/Resolving]

NARRATIVE: CASE EVENT DATE: 20240504
